FAERS Safety Report 17599872 (Version 1)
Quarter: 2020Q1

REPORT INFORMATION
  Report Type: Spontaneous
  Country: US (occurrence: US)
  Receive Date: 20200330
  Receipt Date: 20200330
  Transmission Date: 20200409
  Serious: Yes (Other)
  Sender: FDA-Public Use
  Company Number: US-MSN LABORATORIES PRIVATE LIMITED-2082114

PATIENT
  Sex: Female

DRUGS (2)
  1. DOCETAXEL. [Suspect]
     Active Substance: DOCETAXEL
     Route: 065
  2. FOSAPREPITANT [Suspect]
     Active Substance: FOSAPREPITANT
     Indication: BREAST CANCER
     Route: 065

REACTIONS (1)
  - Anaphylactic reaction [Unknown]
